FAERS Safety Report 7553094-9 (Version None)
Quarter: 2011Q2

REPORT INFORMATION
  Report Type: 
  Country: None (occurrence: None)
  Receive Date: 20110616
  Receipt Date: 20110610
  Transmission Date: 20111010
  Serious: Yes (Other)
  Sender: FDA-Public Use
  Company Number: SA-GENENTECH-304424

PATIENT

DRUGS (3)
  1. HEPARIN [Concomitant]
     Indication: PROPHYLAXIS
  2. ACTIVASE [Suspect]
     Indication: INTRACARDIAC THROMBUS
     Route: 042
  3. ACTIVASE [Suspect]
     Indication: THROMBOSIS

REACTIONS (1)
  - HAEMORRHAGE [None]
